FAERS Safety Report 18733982 (Version 2)
Quarter: 2021Q1

REPORT INFORMATION
  Report Type: Spontaneous
  Country: JP (occurrence: JP)
  Receive Date: 20210113
  Receipt Date: 20210210
  Transmission Date: 20210419
  Serious: Yes (Hospitalization)
  Sender: FDA-Public Use
  Company Number: JP-ROCHE-2748824

PATIENT
  Age: 76 Year
  Sex: Female
  Weight: 53 kg

DRUGS (3)
  1. HERCEPTIN [Suspect]
     Active Substance: TRASTUZUMAB
     Indication: BREAST CANCER
     Dosage: 240?120 MG
     Route: 041
     Dates: start: 20150427, end: 20201210
  2. PERJETA [Suspect]
     Active Substance: PERTUZUMAB
     Indication: BREAST CANCER
     Dosage: 420 MG/14 ML
     Route: 041
     Dates: start: 20170427, end: 20201210
  3. XELODA [Suspect]
     Active Substance: CAPECITABINE
     Indication: BREAST CANCER
     Route: 048
     Dates: start: 20180406, end: 20180420

REACTIONS (1)
  - Interstitial lung disease [Recovered/Resolved with Sequelae]

NARRATIVE: CASE EVENT DATE: 20201224
